FAERS Safety Report 20171692 (Version 1)
Quarter: 2021Q4

REPORT INFORMATION
  Report Type: Spontaneous
  Country: FR (occurrence: FR)
  Receive Date: 20211210
  Receipt Date: 20211210
  Transmission Date: 20220303
  Serious: Yes (Other)
  Sender: FDA-Public Use
  Company Number: None

PATIENT
  Age: 73 Year
  Sex: Female
  Weight: 52 kg

DRUGS (5)
  1. EPINEPHRINE [Suspect]
     Active Substance: EPINEPHRINE
     Indication: Product used for unknown indication
     Dosage: UNK
     Route: 065
     Dates: start: 20200107
  2. LIDOCAINE [Suspect]
     Active Substance: LIDOCAINE
     Indication: Local anaesthesia
     Dosage: ADMINISTERED DURING INITIAL EXPLORATION ON 7TH JANUARY 2020 EMERGENCY DEPARTMENT OF ANOTHER HOSPITAL
     Route: 065
     Dates: start: 20200107
  3. LIDOCAINE [Suspect]
     Active Substance: LIDOCAINE
     Indication: Local anaesthesia
     Dosage: LOCAL ANAESTHESIA WAS ADMINISTERED IN THE AREA OF THE PALM USING 14ML...
     Route: 065
     Dates: start: 20200109
  4. SODIUM CHLORIDE [Concomitant]
     Active Substance: SODIUM CHLORIDE
     Indication: Vehicle solution use
     Dosage: 10 MILLILITER (LOCAL ANAESTHESIA WAS ADMINISTERED IN THE AREA ...
     Route: 065
     Dates: start: 20200109
  5. SODIUM BICARBONATE [Concomitant]
     Active Substance: SODIUM BICARBONATE
     Indication: Vehicle solution use
     Dosage: 1 MILLILITER (LOCAL ANAESTHESIA WAS ADMINISTERED IN THE AREA OF THE PALM USING 14ML OF A SOLUTION...
     Route: 065
     Dates: start: 20200109

REACTIONS (1)
  - Ischaemia [Recovered/Resolved]

NARRATIVE: CASE EVENT DATE: 20200109
